FAERS Safety Report 20763225 (Version 1)
Quarter: 2022Q2

REPORT INFORMATION
  Report Type: Spontaneous
  Country: GB (occurrence: GB)
  Receive Date: 20220428
  Receipt Date: 20220428
  Transmission Date: 20220721
  Serious: Yes (Hospitalization)
  Sender: FDA-Public Use
  Company Number: GB-MHRA-MED-202204221613331070-VXGD0

PATIENT

DRUGS (1)
  1. PIPERACILLIN SODIUM\TAZOBACTAM SODIUM [Suspect]
     Active Substance: PIPERACILLIN SODIUM\TAZOBACTAM SODIUM
     Indication: Bronchiectasis
     Dosage: 13.5 G, 24 HOURS INFUSION
     Route: 042
     Dates: start: 20220411, end: 20220420

REACTIONS (6)
  - Thrombocytopenia [Recovering/Resolving]
  - Rash [Unknown]
  - Oral mucosal blistering [Unknown]
  - Haemoptysis [Unknown]
  - Haematochezia [Unknown]
  - Platelet count decreased [Unknown]

NARRATIVE: CASE EVENT DATE: 20220419
